FAERS Safety Report 8408715-5 (Version None)
Quarter: 2012Q2

REPORT INFORMATION
  Report Type: 
  Country: None (occurrence: None)
  Receive Date: 20120604
  Receipt Date: 20120528
  Transmission Date: 20120825
  Serious: Yes (Death)
  Sender: FDA-Public Use
  Company Number: ES-CELGENEUS-144-21660-12053343

PATIENT
  Sex: Female

DRUGS (2)
  1. NEUPOGEN [Concomitant]
     Route: 065
  2. ABRAXANE [Suspect]
     Route: 041

REACTIONS (6)
  - DEATH [None]
  - FATIGUE [None]
  - VOMITING [None]
  - NAUSEA [None]
  - ANAEMIA [None]
  - NEUTROPENIA [None]
